FAERS Safety Report 5397538-X (Version None)
Quarter: 2007Q3

REPORT INFORMATION
  Report Type: 
  Country: None (occurrence: None)
  Receive Date: 20070724
  Receipt Date: 20070724
  Transmission Date: 20080115
  Serious: Yes (Life-Threatening)
  Sender: FDA-Public Use
  Company Number: None

PATIENT
  Age: 47 Year
  Sex: Female
  Weight: 73.9363 kg

DRUGS (11)
  1. LIPITOR [Suspect]
     Indication: BLOOD CHOLESTEROL INCREASED
     Dosage: 20 MG QD PO
     Route: 048
     Dates: start: 20030101, end: 20070509
  2. LIPITOR [Suspect]
     Indication: CARDIAC DISORDER
     Dosage: 20 MG QD PO
     Route: 048
     Dates: start: 20030101, end: 20070509
  3. LIPITOR [Suspect]
     Indication: PROPHYLAXIS
     Dosage: 20 MG QD PO
     Route: 048
     Dates: start: 20030101, end: 20070509
  4. BUSPAR [Concomitant]
  5. VALTREX [Concomitant]
  6. DITROPAN XL [Concomitant]
  7. IMIPRAMINE [Concomitant]
  8. PREMARIN [Concomitant]
  9. MULTI-VITAMIN [Concomitant]
  10. GLUCOSAMINE-CHONDROITIN [Concomitant]
  11. FISH OIL [Concomitant]

REACTIONS (10)
  - ABDOMINAL DISTENSION [None]
  - ABDOMINAL PAIN [None]
  - CONSTIPATION [None]
  - DECREASED APPETITE [None]
  - FATIGUE [None]
  - GASTROINTESTINAL DISORDER [None]
  - GASTROINTESTINAL PAIN [None]
  - PAIN [None]
  - WEIGHT ABNORMAL [None]
  - WEIGHT DECREASED [None]
